FAERS Safety Report 20013039 (Version 1)
Quarter: 2021Q4

REPORT INFORMATION
  Report Type: Spontaneous
  Country: US (occurrence: US)
  Receive Date: 20211029
  Receipt Date: 20211029
  Transmission Date: 20220303
  Serious: No
  Sender: FDA-Public Use
  Company Number: US-EISAI MEDICAL RESEARCH-EC-2021-101850

PATIENT
  Sex: Male

DRUGS (2)
  1. DAYVIGO [Suspect]
     Active Substance: LEMBOREXANT
     Indication: Insomnia
     Route: 048
     Dates: start: 2021, end: 2021
  2. TRAZODONE [Suspect]
     Active Substance: TRAZODONE HYDROCHLORIDE
     Indication: Product used for unknown indication
     Route: 048

REACTIONS (3)
  - Drug ineffective [Unknown]
  - Fall [Unknown]
  - Joint dislocation [Unknown]

NARRATIVE: CASE EVENT DATE: 20210101
